FAERS Safety Report 16627552 (Version 5)
Quarter: 2023Q2

REPORT INFORMATION
  Report Type: Report from Study
  Country: AT (occurrence: AT)
  Receive Date: 20190724
  Receipt Date: 20230620
  Transmission Date: 20230721
  Serious: Yes (Hospitalization)
  Sender: FDA-Public Use
  Company Number: AT-ROCHE-2204092

PATIENT
  Age: 78 Year
  Sex: Female
  Weight: 58 kg

DRUGS (31)
  1. TRASTUZUMAB [Suspect]
     Active Substance: TRASTUZUMAB
     Indication: HER2 positive breast cancer
     Dosage: 464 MG, Q3W(RECENT DOSE PRIOR EVENT: 21/SEP/2018)
     Route: 042
     Dates: start: 20180810, end: 20180810
  2. TRASTUZUMAB [Suspect]
     Active Substance: TRASTUZUMAB
     Dosage: 336 MILLIGRAM, Q3W
     Route: 042
     Dates: start: 20180921, end: 20181106
  3. LETROZOLE [Suspect]
     Active Substance: LETROZOLE
     Indication: Breast cancer metastatic
     Dosage: 2.5 MILLIGRAM, QD (ONCE DAILY)
     Route: 048
  4. PACLITAXEL [Suspect]
     Active Substance: PACLITAXEL
     Indication: Breast cancer metastatic
     Dosage: 129.61 MILLIGRAM, QW
     Route: 042
     Dates: start: 20180810, end: 20180824
  5. PACLITAXEL [Suspect]
     Active Substance: PACLITAXEL
     Indication: HER2 positive breast cancer
  6. PACLITAXEL [Suspect]
     Active Substance: PACLITAXEL
     Indication: Breast cancer metastatic
     Dosage: 279.32 MILLIGRAM, QW
     Route: 042
     Dates: start: 20180921, end: 20180921
  7. PACLITAXEL [Suspect]
     Active Substance: PACLITAXEL
     Indication: HER2 positive breast cancer
     Dosage: 127.69 MILLIGRAM, QW
     Route: 042
     Dates: start: 20180928, end: 20181019
  8. FEMARA [Suspect]
     Active Substance: LETROZOLE
     Indication: Breast cancer
     Dosage: 2.5 MILLIGRAM, QD
     Route: 048
     Dates: start: 20181029
  9. FEMARA [Suspect]
     Active Substance: LETROZOLE
     Indication: Breast cancer metastatic
  10. PERTUZUMAB [Suspect]
     Active Substance: PERTUZUMAB
     Indication: HER2 positive breast cancer
     Dosage: 840 MG, Q3W(RECENT DOSE PRIOR EVENT: 21/SEP/2018)
     Route: 042
     Dates: start: 20180810, end: 20180810
  11. PERTUZUMAB [Suspect]
     Active Substance: PERTUZUMAB
     Dosage: 420 MILLIGRAM, Q3W
     Route: 042
     Dates: start: 20180921, end: 20190201
  12. DENOSUMAB [Suspect]
     Active Substance: DENOSUMAB
     Indication: HER2 positive breast cancer
     Dosage: 120 MILLIGRAM, Q28D, 4 WEEK
     Route: 058
     Dates: start: 20181012
  13. RANITIDINE HYDROCHLORIDE [Concomitant]
     Active Substance: RANITIDINE HYDROCHLORIDE
     Dosage: 4 MILLIGRAM, ONGOING = NOT CHECKED
     Route: 065
     Dates: start: 20180810, end: 20181019
  14. FENAKUT [Concomitant]
     Dosage: 3 MILLIGRAM, QW, ONGOING = NOT CHECKE
     Route: 065
     Dates: start: 20180810, end: 20181019
  15. XGEVA [Concomitant]
     Active Substance: DENOSUMAB
     Dosage: ONGOING = CHECKED
     Route: 065
     Dates: start: 20181012
  16. METOPROLOL [Concomitant]
     Active Substance: METOPROLOL
     Dosage: 47.5 MILLIGRAM, QD, ONGOING = CHECKED
     Route: 065
  17. ASPIRIN [Concomitant]
     Active Substance: ASPIRIN
     Dosage: 100 MILLIGRAM, QD, ONGOING = CHECKED
     Route: 065
     Dates: start: 20181012, end: 20181115
  18. Acemin [Concomitant]
     Dosage: ONGOING = CHECKED
     Route: 065
  19. KYTRIL [Concomitant]
     Active Substance: GRANISETRON HYDROCHLORIDE
     Dosage: 3 MILLIGRAM, ONGOING = NOT CHECKED
     Route: 065
     Dates: start: 20180810, end: 20181019
  20. DEXABENE [Concomitant]
     Dosage: 20 MILLIGRAM, QW, ONGOING = NOT CHECKED
     Route: 065
     Dates: start: 20180810, end: 20181019
  21. AMLODIPINE [Concomitant]
     Active Substance: AMLODIPINE BESYLATE
     Dosage: 5 MILLIGRAM
     Route: 065
     Dates: start: 201812
  22. VITAMINS WITH MINERALS [Concomitant]
     Active Substance: MINERALS\VITAMINS
     Dosage: UNK, ONGOING = NOT CHECKED
     Route: 065
     Dates: start: 20181029
  23. LEVOCETIRIZINE DIHYDROCHLORIDE [Concomitant]
     Active Substance: LEVOCETIRIZINE DIHYDROCHLORIDE
     Dosage: 5 MILLIGRAM
     Route: 065
  24. Acemin [Concomitant]
     Dosage: 20 MILLIGRAM, QD, ONGOING = CHECKED
     Route: 065
  25. RIVASTIGMINE [Concomitant]
     Active Substance: RIVASTIGMINE
     Dosage: UNK
     Route: 065
  26. PANTOPRAZOLE SODIUM [Concomitant]
     Active Substance: PANTOPRAZOLE SODIUM
     Dosage: 40 MILLIGRAM
     Route: 065
  27. CALCIUM CARBONATE\CHOLECALCIFEROL [Concomitant]
     Active Substance: CALCIUM CARBONATE\CHOLECALCIFEROL
     Dosage: UNK
     Route: 065
     Dates: start: 20191230
  28. Kalioral [Concomitant]
     Dosage: UNK
     Route: 065
  29. DEXAGENTA POS [Concomitant]
     Dosage: UNK
     Route: 065
  30. GLUCOPHAGE [Concomitant]
     Active Substance: METFORMIN HYDROCHLORIDE
     Indication: Diabetes mellitus
     Dosage: 500 MILLIGRAM
     Route: 065
  31. CIPRALEX [Concomitant]
     Active Substance: ESCITALOPRAM OXALATE
     Dosage: 5 MILLIGRAM, QD
     Route: 065
     Dates: start: 201901

REACTIONS (7)
  - Mucosal dryness [Recovered/Resolved]
  - Lymphoedema [Recovered/Resolved]
  - Anaemia [Recovered/Resolved]
  - Epistaxis [Recovered/Resolved]
  - Nausea [Recovered/Resolved]
  - Fatigue [Recovered/Resolved]
  - Oedema peripheral [Recovered/Resolved]

NARRATIVE: CASE EVENT DATE: 20180928
